FAERS Safety Report 10993381 (Version 1)
Quarter: 2015Q2

REPORT INFORMATION
  Report Type: Spontaneous
  Country: US (occurrence: None)
  Receive Date: 20150406
  Receipt Date: 20150406
  Transmission Date: 20150821
  Serious: Yes (Death)
  Sender: FDA-Public Use
  Company Number: None

PATIENT
  Age: 55 Year
  Sex: Male
  Weight: 88.45 kg

DRUGS (4)
  1. IBUPROFEN. [Concomitant]
     Active Substance: IBUPROFEN
  2. TAMSULOSIN [Concomitant]
     Active Substance: TAMSULOSIN
  3. XANAX [Suspect]
     Active Substance: ALPRAZOLAM
     Indication: INSOMNIA
     Dosage: 1
     Route: 048
     Dates: start: 20150212, end: 20150216
  4. XANAX [Suspect]
     Active Substance: ALPRAZOLAM
     Indication: STRESS
     Dosage: 1
     Route: 048
     Dates: start: 20150212, end: 20150216

REACTIONS (3)
  - Delusion [None]
  - Intentional self-injury [None]
  - Insomnia [None]

NARRATIVE: CASE EVENT DATE: 20150217
